FAERS Safety Report 13344406 (Version 1)
Quarter: 2017Q1

REPORT INFORMATION
  Report Type: Spontaneous
  Country: US (occurrence: US)
  Receive Date: 20170317
  Receipt Date: 20170317
  Transmission Date: 20170428
  Serious: Yes (Hospitalization, Other)
  Sender: FDA-Public Use
  Company Number: US-ASTRAZENECA-2017SE27340

PATIENT
  Age: 678 Month
  Sex: Male

DRUGS (8)
  1. CLOZAPINE. [Suspect]
     Active Substance: CLOZAPINE
     Dosage: 1: 100 MG, UNKNOWN, 50 MILLIGRAM PER DAY, EVERY OTHER DAY
     Route: 065
  2. PROTONIX [Concomitant]
     Active Substance: PANTOPRAZOLE SODIUM
  3. TOPROL XL [Suspect]
     Active Substance: METOPROLOL SUCCINATE
     Route: 048
  4. LOVAZA [Concomitant]
     Active Substance: OMEGA-3-ACID ETHYL ESTERS
  5. CLOZAPINE. [Suspect]
     Active Substance: CLOZAPINE
     Dosage: 2: 500 MG, UNKNOWN, 500 MILLIGRAM PER DAY, EVERY NIGHT
     Route: 065
  6. CLONAZEPAM. [Concomitant]
     Active Substance: CLONAZEPAM
     Route: 065
  7. SEROQUEL [Suspect]
     Active Substance: QUETIAPINE FUMARATE
     Dosage: LOW DOSE ADDED
     Route: 048
  8. CLOZAPINE. [Suspect]
     Active Substance: CLOZAPINE
     Dosage: 1 IN 2 D, UNKNOWN (TEVA PRODUCT)
     Route: 065

REACTIONS (6)
  - Self-injurious ideation [Recovered/Resolved]
  - Musculoskeletal disorder [Recovered/Resolved]
  - Dizziness [Unknown]
  - Delirium [Recovered/Resolved]
  - Agitation [Recovered/Resolved]
  - Paranoia [Recovered/Resolved]

NARRATIVE: CASE EVENT DATE: 201608
